FAERS Safety Report 7338921-2 (Version None)
Quarter: 2011Q1

REPORT INFORMATION
  Report Type: 
  Country: None (occurrence: None)
  Receive Date: 20110308
  Receipt Date: 20110210
  Transmission Date: 20110831
  Serious: No
  Sender: FDA-Public Use
  Company Number: US-B.I. PHARMACEUTICALS,INC./RIDGEFIELD-2011-BP-00552BP

PATIENT
  Sex: Female

DRUGS (10)
  1. PRADAXA [Suspect]
     Indication: CEREBROVASCULAR ACCIDENT PROPHYLAXIS
  2. OMEPRAZOLE [Concomitant]
     Indication: GASTROOESOPHAGEAL REFLUX DISEASE
     Dosage: 40 MG
     Route: 048
  3. OMEPRAZOLE [Concomitant]
  4. SIMVASTATIN [Concomitant]
     Indication: CARDIAC DISORDER
  5. METOPROLOL [Concomitant]
     Indication: CARDIAC DISORDER
     Dosage: 100 MG
     Route: 048
  6. ISOSORBIDE DINITRATE [Concomitant]
     Dosage: 30 MG
     Route: 048
  7. PRADAXA [Suspect]
     Indication: ANTICOAGULANT THERAPY
  8. PRADAXA [Suspect]
     Indication: ATRIAL FIBRILLATION
     Dosage: 300 MG
     Route: 048
     Dates: start: 20101213
  9. LOSARTIN/POTASSIUM [Concomitant]
     Dosage: 100 MG
     Route: 048
  10. SIMVASTATIN [Concomitant]
     Indication: BLOOD CHOLESTEROL
     Dosage: 20 MG
     Route: 048

REACTIONS (7)
  - INCREASED UPPER AIRWAY SECRETION [None]
  - URINARY TRACT INFECTION [None]
  - POLLAKIURIA [None]
  - DYSPHAGIA [None]
  - URINE ODOUR ABNORMAL [None]
  - RENAL IMPAIRMENT [None]
  - DYSPEPSIA [None]
